FAERS Safety Report 5046299-2 (Version None)
Quarter: 2006Q3

REPORT INFORMATION
  Report Type: 
  Country: None (occurrence: None)
  Receive Date: 20060710
  Receipt Date: 20060630
  Transmission Date: 20061208
  Serious: Yes (Hospitalization)
  Sender: FDA-Public Use
  Company Number: 2006UW13863

PATIENT
  Age: 21553 Day
  Sex: Male

DRUGS (3)
  1. CRESTOR [Suspect]
     Indication: BLOOD CHOLESTEROL INCREASED
     Route: 048
     Dates: start: 20040418, end: 20051007
  2. DITROPAN XL [Concomitant]
  3. HYDROCODONE [Concomitant]

REACTIONS (4)
  - GRAND MAL CONVULSION [None]
  - HYPONATRAEMIA [None]
  - RENAL FAILURE ACUTE [None]
  - RHABDOMYOLYSIS [None]
